FAERS Safety Report 9245996 (Version 2)
Quarter: 2013Q2

REPORT INFORMATION
  Report Type: Spontaneous
  Country: JP (occurrence: JP)
  Receive Date: 20130422
  Receipt Date: 20130502
  Transmission Date: 20140414
  Serious: Yes (Other)
  Sender: FDA-Public Use
  Company Number: PHHY2013JP038652

PATIENT
  Sex: Male

DRUGS (7)
  1. CARBAMAZEPINE [Suspect]
     Indication: STATUS EPILEPTICUS
     Route: 048
  2. PHENOBARBITAL [Concomitant]
     Indication: GRAND MAL CONVULSION
  3. SODIUM VALPROATE [Concomitant]
     Indication: STATUS EPILEPTICUS
     Route: 048
  4. ZONISAMIDE [Concomitant]
     Indication: STATUS EPILEPTICUS
     Route: 048
  5. CLOBAZAM [Concomitant]
     Indication: STATUS EPILEPTICUS
  6. NITRAZEPAM [Concomitant]
     Indication: STATUS EPILEPTICUS
     Route: 048
  7. POTASSIUM BROMIDE [Concomitant]

REACTIONS (9)
  - Complex partial seizures [Unknown]
  - Myoclonic epilepsy [Unknown]
  - Cyanosis [Unknown]
  - Status epilepticus [Recovered/Resolved]
  - Abnormal behaviour [Unknown]
  - Feeling abnormal [Unknown]
  - Movement disorder [Unknown]
  - Convulsion [Unknown]
  - Pyrexia [Unknown]
